FAERS Safety Report 6318706-6 (Version None)
Quarter: 2009Q3

REPORT INFORMATION
  Report Type: 
  Country: None (occurrence: None)
  Receive Date: 20090821
  Receipt Date: 20090807
  Transmission Date: 20100115
  Serious: Yes (Death, Hospitalization)
  Sender: FDA-Public Use
  Company Number: US-ROCHE-602063

PATIENT
  Sex: Male
  Weight: 75.7 kg

DRUGS (14)
  1. PEG-INTERFERON ALFA 2A (RO 25-8310) [Suspect]
     Indication: HEPATITIS C
     Dosage: TAKES ON TUESDAYS. PERMANENTLY DISCONTINUED.
     Route: 065
     Dates: start: 20080930, end: 20081128
  2. RIBAVIRIN [Suspect]
     Indication: HEPATITIS C
     Route: 065
  3. RIBAVIRIN [Suspect]
     Dosage: DOSE REDUCED.
     Route: 065
     Dates: end: 20081128
  4. BLINDED NITAZOXANIDE [Suspect]
     Indication: HEPATITIS C
     Dosage: DOSE BLINDED.
     Route: 065
     Dates: start: 20080903
  5. BLINDED NITAZOXANIDE [Suspect]
     Dosage: DOSE CHANGED ON AN UNKNOWN DATE.
     Route: 065
     Dates: end: 20081128
  6. LORAZEPAM [Concomitant]
     Route: 048
     Dates: start: 20080912
  7. LYRICA [Concomitant]
     Route: 048
     Dates: start: 20080930
  8. HYOSCYAMINE [Concomitant]
     Dosage: GIVEN EVERY 4-6 HOURS AS NEEDED.
     Dates: start: 20081001
  9. CLONAZEPAM [Concomitant]
     Route: 048
     Dates: start: 20080922
  10. ZALEPLON [Concomitant]
     Dosage: GIVEN AT BEDTIME.
     Route: 048
     Dates: start: 20081113
  11. IBUPROFEN [Concomitant]
     Dosage: 4 TIMES A DAY AS NEEDED.
     Route: 048
     Dates: start: 20081027
  12. SEROQUEL [Concomitant]
     Dosage: TWO AT BEDTIME.
     Route: 048
     Dates: start: 20081029
  13. LEXAPRO [Concomitant]
     Route: 048
  14. LEXAPRO [Concomitant]
     Dosage: DOSE INCREASED.
     Route: 048
     Dates: start: 20081113

REACTIONS (5)
  - ACUTE RESPIRATORY FAILURE [None]
  - ANAEMIA [None]
  - CARDIAC ARREST [None]
  - PLEURAL EFFUSION [None]
  - PNEUMONIA [None]
